FAERS Safety Report 7152026-5 (Version None)
Quarter: 2010Q4

REPORT INFORMATION
  Report Type: 
  Country: None (occurrence: None)
  Receive Date: 20101208
  Receipt Date: 20101208
  Transmission Date: 20110411
  Serious: No
  Sender: FDA-Public Use
  Company Number: None

PATIENT
  Age: 55 Year
  Sex: Female
  Weight: 50 kg

DRUGS (1)
  1. SYNTHROID [Suspect]
     Indication: HYPOTHYROIDISM
     Dosage: 50MCG QD PO (MONTH ON NOVEMBER)
     Route: 048

REACTIONS (3)
  - ANXIETY [None]
  - INSOMNIA [None]
  - PRODUCT QUALITY ISSUE [None]
